FAERS Safety Report 25631925 (Version 1)
Quarter: 2025Q3

REPORT INFORMATION
  Report Type: Spontaneous
  Country: US (occurrence: US)
  Receive Date: 20250801
  Receipt Date: 20250801
  Transmission Date: 20251020
  Serious: Yes (Hospitalization)
  Sender: ROCHE
  Company Number: US-ROCHE-10000352961

PATIENT
  Age: 42 Year
  Sex: Female

DRUGS (16)
  1. XOLAIR [Suspect]
     Active Substance: OMALIZUMAB
     Indication: Asthma
     Dosage: STRENGTH: 300MG/2ML
     Route: 058
     Dates: start: 20250521
  2. TRELEGY ELLIPTA [Concomitant]
     Active Substance: FLUTICASONE FUROATE\UMECLIDINIUM BROMIDE\VILANTEROL TRIFENATATE
  3. DUONEB [Concomitant]
     Active Substance: ALBUTEROL SULFATE\IPRATROPIUM BROMIDE
  4. ESZOPICLONE [Concomitant]
     Active Substance: ESZOPICLONE
  5. ELETRIPTAN [Concomitant]
     Active Substance: ELETRIPTAN
  6. SPIRONOLACTONE [Concomitant]
     Active Substance: SPIRONOLACTONE
  7. BACLOFEN [Concomitant]
     Active Substance: BACLOFEN
  8. BUPROPION [Concomitant]
     Active Substance: BUPROPION
  9. PROMETHAZINE [Concomitant]
     Active Substance: PROMETHAZINE HYDROCHLORIDE
  10. TRULANCE [Concomitant]
     Active Substance: PLECANATIDE
  11. CLONAZEPAM [Concomitant]
     Active Substance: CLONAZEPAM
  12. TORSEMIDE [Concomitant]
     Active Substance: TORSEMIDE
  13. VYVANSE [Concomitant]
     Active Substance: LISDEXAMFETAMINE DIMESYLATE
  14. LAMOTRIGINE [Concomitant]
     Active Substance: LAMOTRIGINE
  15. LISINOPRIL [Concomitant]
     Active Substance: LISINOPRIL
  16. FAMOTIDINE [Concomitant]
     Active Substance: FAMOTIDINE

REACTIONS (1)
  - Systemic lupus erythematosus [Unknown]

NARRATIVE: CASE EVENT DATE: 20250701
